FAERS Safety Report 6214800-9 (Version None)
Quarter: 2009Q2

REPORT INFORMATION
  Report Type: 
  Country: None (occurrence: None)
  Receive Date: 20090604
  Receipt Date: 20090528
  Transmission Date: 20091009
  Serious: Yes (Hospitalization)
  Sender: FDA-Public Use
  Company Number: B0574323B

PATIENT
  Sex: Male

DRUGS (2)
  1. LAPATINIB [Suspect]
     Dosage: 18750MG PER DAY
     Route: 048
     Dates: start: 20090428
  2. DOCETAXEL [Suspect]
     Dosage: 145MG EVERY 3 WEEKS
     Route: 042
     Dates: start: 20090428

REACTIONS (4)
  - ABDOMINAL PAIN [None]
  - DIARRHOEA [None]
  - HYPOPHAGIA [None]
  - ILEUS [None]
